FAERS Safety Report 5892296-4 (Version None)
Quarter: 2008Q3

REPORT INFORMATION
  Report Type: 
  Country: None (occurrence: None)
  Receive Date: 20080919
  Receipt Date: 20080912
  Transmission Date: 20090109
  Serious: Yes (Hospitalization)
  Sender: FDA-Public Use
  Company Number: 2008SP018900

PATIENT
  Age: 55 Year
  Sex: Female
  Weight: 80.5 kg

DRUGS (2)
  1. TEMODAR [Suspect]
     Indication: GLIOBLASTOMA MULTIFORME
     Dosage: 180 MG;QD;PO; 180 MG;QD;PO
     Route: 048
     Dates: start: 20080814, end: 20080903
  2. TEMODAR [Suspect]
     Indication: GLIOBLASTOMA MULTIFORME
     Dosage: 180 MG;QD;PO; 180 MG;QD;PO
     Route: 048
     Dates: start: 20080418

REACTIONS (4)
  - BACTERIAL INFECTION [None]
  - CSF CULTURE POSITIVE [None]
  - INTRACRANIAL HYPOTENSION [None]
  - WOUND INFECTION [None]
